FAERS Safety Report 4630130-0 (Version None)
Quarter: 2005Q2

REPORT INFORMATION
  Report Type: 
  Country: None (occurrence: None)
  Receive Date: 20050408
  Receipt Date: 20050331
  Transmission Date: 20051028
  Serious: Yes (Hospitalization)
  Sender: FDA-Public Use
  Company Number: GB-GLAXOSMITHKLINE-B0376395A

PATIENT
  Age: 60 Year
  Sex: Male
  Weight: 79 kg

DRUGS (8)
  1. AUGMENTIN [Suspect]
     Indication: LOWER RESPIRATORY TRACT INFECTION
     Dosage: 625MG THREE TIMES PER DAY
     Route: 048
     Dates: start: 20050208, end: 20050214
  2. CLARITHROMYCIN [Suspect]
     Indication: LOWER RESPIRATORY TRACT INFECTION
     Route: 048
     Dates: start: 20050214, end: 20050218
  3. LEMSIP [Concomitant]
     Route: 048
     Dates: start: 20050205, end: 20050210
  4. AMLODIPINE [Concomitant]
     Route: 048
     Dates: end: 20050214
  5. EVENING PRIMROSE OIL [Concomitant]
     Route: 048
     Dates: end: 20050214
  6. PARACETAMOL [Concomitant]
     Route: 048
  7. IBUPROFEN [Concomitant]
     Route: 065
  8. MULTI-VITAMINS [Concomitant]
     Dates: end: 20050214

REACTIONS (8)
  - ABDOMINAL PAIN [None]
  - BLOOD BILIRUBIN INCREASED [None]
  - CONSTIPATION [None]
  - HEPATITIS [None]
  - JAUNDICE [None]
  - LIVER FUNCTION TEST ABNORMAL [None]
  - NAUSEA [None]
  - VOMITING [None]
